FAERS Safety Report 19098515 (Version 3)
Quarter: 2021Q2

REPORT INFORMATION
  Report Type: Report from Study
  Country: US (occurrence: US)
  Receive Date: 20210406
  Receipt Date: 20210608
  Transmission Date: 20210717
  Serious: Yes (Hospitalization)
  Sender: FDA-Public Use
  Company Number: US-ROCHE-2796256

PATIENT
  Age: 36 Year
  Sex: Female
  Weight: 79 kg

DRUGS (11)
  1. RHUPH20 [Suspect]
     Active Substance: HYALURONIDASE (HUMAN RECOMBINANT)
     Indication: MULTIPLE SCLEROSIS
     Dosage: TOTAL VOLUME PRIOR ADVERSE EVENT (AE) AND SERIOUS AE (SAE) WAS 1200 ML?DOSE CONCENTRATION WAS 40 MG/
     Route: 058
     Dates: start: 20191022
  2. SOLU?MEDROL [Concomitant]
     Active Substance: METHYLPREDNISOLONE SODIUM SUCCINATE
     Indication: MULTIPLE SCLEROSIS RELAPSE
     Route: 042
     Dates: start: 20210106
  3. LOVENOX [Concomitant]
     Active Substance: ENOXAPARIN SODIUM
     Indication: PROPHYLAXIS
     Route: 058
     Dates: start: 20210321, end: 20210328
  4. BACLOFEN. [Concomitant]
     Active Substance: BACLOFEN
     Indication: MUSCLE SPASTICITY
     Route: 048
     Dates: start: 20191031
  5. OCRELIZUMAB. [Suspect]
     Active Substance: OCRELIZUMAB
     Indication: MULTIPLE SCLEROSIS
     Dosage: TOTAL VOLUME PRIOR AE AND SAE WAS 520 ML?DOSE CONCENTRATION WAS 1.15 MG/ML?START DATE OF MOST RECENT
     Route: 042
     Dates: start: 20200113
  6. CLONAZEPAM. [Concomitant]
     Active Substance: CLONAZEPAM
     Indication: TREMOR
     Route: 048
     Dates: start: 2016
  7. GABAPENTIN. [Concomitant]
     Active Substance: GABAPENTIN
     Indication: NEURALGIA
     Route: 048
     Dates: start: 20190723
  8. VITAMIN D2 [Concomitant]
     Active Substance: ERGOCALCIFEROL
     Route: 048
     Dates: start: 20210328
  9. OCRELIZUMAB. [Suspect]
     Active Substance: OCRELIZUMAB
     Indication: MULTIPLE SCLEROSIS
     Dosage: TOTAL VOLUME PRIOR ADVERSE EVENT (AE) AND SERIOUS AE (SAE) WAS 1200 ML?DOSE CONCENTRATION WAS 40 MG/
     Route: 058
     Dates: start: 20191022
  10. VITAMIN B?1 [Concomitant]
     Active Substance: THIAMINE HYDROCHLORIDE
     Route: 048
     Dates: start: 20151224
  11. AMPYRA [Concomitant]
     Active Substance: DALFAMPRIDINE
     Indication: GAIT DISTURBANCE
     Route: 048
     Dates: start: 20190117

REACTIONS (1)
  - Pneumonia [Recovered/Resolved]

NARRATIVE: CASE EVENT DATE: 20210314
